FAERS Safety Report 9535466 (Version 2)
Quarter: 2013Q4

REPORT INFORMATION
  Report Type: Spontaneous
  Country: JP (occurrence: JP)
  Receive Date: 20130918
  Receipt Date: 20131008
  Transmission Date: 20140711
  Serious: Yes (Other)
  Sender: FDA-Public Use
  Company Number: JP-ACTAVIS-2013-16016

PATIENT
  Age: 56 Year
  Sex: Male

DRUGS (6)
  1. OXALIPLATIN (UNKNOWN) [Suspect]
     Indication: RECTAL CANCER
     Dosage: 68 MG/M2, UNK
     Route: 040
  2. OXALIPLATIN (UNKNOWN) [Suspect]
     Dosage: 85 MG/M2, UNK
     Route: 040
  3. FOLINIC ACID                       /00566702/ [Concomitant]
     Indication: RECTAL CANCER
     Dosage: 160 MG/M2, UNK
     Route: 040
  4. FOLINIC ACID                       /00566702/ [Concomitant]
     Dosage: 200 MG/M2, UNKNOWN
     Route: 040
  5. FLUOROURACIL [Concomitant]
     Indication: RECTAL CANCER
     Dosage: 320 MG/M2, UNK
     Route: 040
  6. FLUOROURACIL [Concomitant]
     Dosage: 400 MG/M2, UNKNOWN
     Route: 040

REACTIONS (3)
  - Splenomegaly [Not Recovered/Not Resolved]
  - Thrombocytopenia [Not Recovered/Not Resolved]
  - Neuropathy peripheral [Recovering/Resolving]
